FAERS Safety Report 11342474 (Version 1)
Quarter: 2015Q3

REPORT INFORMATION
  Report Type: Spontaneous
  Country: US (occurrence: US)
  Receive Date: 20150805
  Receipt Date: 20150805
  Transmission Date: 20151125
  Serious: No
  Sender: FDA-Public Use
  Company Number: US-PFIZER INC-2015258417

PATIENT
  Age: 57 Year
  Sex: Female
  Weight: 73 kg

DRUGS (11)
  1. LYRICA [Suspect]
     Active Substance: PREGABALIN
     Dosage: 150 MG, 1X/DAY
     Route: 048
     Dates: start: 20150701
  2. L-THYROXINE [Concomitant]
     Active Substance: LEVOTHYROXINE
     Indication: HYPOTHYROIDISM
     Dosage: 25 MCG, DAILY
     Route: 048
  3. TRAZODONE [Concomitant]
     Active Substance: TRAZODONE HYDROCHLORIDE
     Indication: SLEEP DISORDER
     Dosage: 50 MG, AT BEDTIME
     Route: 048
  4. OLOPATADINE HYDROCHLORIDE. [Concomitant]
     Active Substance: OLOPATADINE HYDROCHLORIDE
     Indication: NASAL CONGESTION
     Dosage: 665 MCG, 1X/DAY (ONE SPRAY ONE TIME A DAY)
     Route: 045
  5. CALCIUM [Concomitant]
     Active Substance: CALCIUM
     Indication: OSTEOPENIA
     Dosage: 1800 MG, DAILY
     Route: 048
  6. MATURE MULTIVITAMINS [Concomitant]
     Dosage: 1 TABLET, DAILY
     Route: 048
  7. LYRICA [Suspect]
     Active Substance: PREGABALIN
     Dosage: 150 MG, 2X/DAY
     Route: 048
     Dates: start: 20150622
  8. ESCITALOPRAM [Concomitant]
     Active Substance: ESCITALOPRAM OXALATE
     Indication: DEPRESSION
     Dosage: 10 MG, 1X/DAY (AT BEDTIME)
     Route: 048
  9. LYRICA [Suspect]
     Active Substance: PREGABALIN
     Indication: FIBROMYALGIA
     Dosage: 75 MG, 2X/DAY
     Route: 048
     Dates: start: 20150605
  10. SIMVASTATIN. [Concomitant]
     Active Substance: SIMVASTATIN
     Indication: BLOOD CHOLESTEROL INCREASED
     Dosage: 10 MG, 1X/DAY (AT BEDTIME)
     Route: 048
  11. TRAMADOL. [Concomitant]
     Active Substance: TRAMADOL
     Indication: BREAKTHROUGH PAIN
     Dosage: 50 MG, EVERY 6 HOURS AS NEEDED
     Route: 048

REACTIONS (8)
  - Drug ineffective [Recovering/Resolving]
  - Weight increased [Not Recovered/Not Resolved]
  - Impaired driving ability [Unknown]
  - Ligament rupture [Unknown]
  - Dizziness [Recovering/Resolving]
  - Contusion [Not Recovered/Not Resolved]
  - Vision blurred [Recovering/Resolving]
  - Fall [Unknown]

NARRATIVE: CASE EVENT DATE: 20150704
